FAERS Safety Report 7753956-3 (Version None)
Quarter: 2011Q3

REPORT INFORMATION
  Report Type: 
  Country: None (occurrence: None)
  Receive Date: 20110915
  Receipt Date: 20110914
  Transmission Date: 20111222
  Serious: Yes (Hospitalization)
  Sender: FDA-Public Use
  Company Number: FR-AMGEN-FRASP2011016309

PATIENT
  Age: 62 Year
  Sex: Female

DRUGS (2)
  1. NPLATE [Suspect]
     Indication: IDIOPATHIC THROMBOCYTOPENIC PURPURA
     Dosage: 250 MUG, UNK
     Route: 058
     Dates: start: 20101013, end: 20110127
  2. TOPALGIC                           /00599202/ [Concomitant]

REACTIONS (4)
  - MYALGIA [None]
  - SCIATICA [None]
  - BONE PAIN [None]
  - ARTHRALGIA [None]
